FAERS Safety Report 11397232 (Version 8)
Quarter: 2015Q4

REPORT INFORMATION
  Report Type: Report from Study
  Country: FR (occurrence: FR)
  Receive Date: 20150819
  Receipt Date: 20151219
  Transmission Date: 20160304
  Serious: Yes (Other)
  Sender: FDA-Public Use
  Company Number: FR-BRISTOL-MYERS SQUIBB COMPANY-BMS-2015-053264

PATIENT
  Age: 68 Year
  Sex: Male
  Weight: 65 kg

DRUGS (9)
  1. NIVOLUMAB [Suspect]
     Active Substance: NIVOLUMAB
     Dosage: 200 MG, UNK
     Route: 065
     Dates: start: 20150921
  2. NIVOLUMAB [Suspect]
     Active Substance: NIVOLUMAB
     Dosage: 200 MG, UNK
     Route: 065
     Dates: start: 20151020
  3. NIVOLUMAB [Suspect]
     Active Substance: NIVOLUMAB
     Indication: NON-SMALL CELL LUNG CANCER
     Dosage: 3 MG/KG, UNK
     Route: 065
     Dates: start: 20150710
  4. NIVOLUMAB [Suspect]
     Active Substance: NIVOLUMAB
     Dosage: 200 MG, UNK
     Route: 065
     Dates: start: 20151020
  5. CORTANCYL [Concomitant]
     Active Substance: PREDNISONE
     Indication: RHEUMATOID ARTHRITIS
     Dosage: 20 MG, QD
     Route: 065
     Dates: start: 201507
  6. NIVOLUMAB [Suspect]
     Active Substance: NIVOLUMAB
     Dosage: 200 MG, UNK
     Route: 065
     Dates: start: 20150824
  7. NIVOLUMAB [Suspect]
     Active Substance: NIVOLUMAB
     Dosage: 3 MG/KG, UNK
     Route: 065
     Dates: start: 20150907
  8. CORTANCYL [Concomitant]
     Active Substance: PREDNISONE
     Indication: POLYARTHRITIS
     Dosage: 7 MG, QD
     Route: 065
  9. CORTANCYL [Concomitant]
     Active Substance: PREDNISONE
     Dosage: 8 MG, QD
     Route: 048

REACTIONS (7)
  - Arthralgia [Recovered/Resolved]
  - Malignant neoplasm progression [Unknown]
  - White blood cell disorder [Recovered/Resolved]
  - Neutrophil count abnormal [Not Recovered/Not Resolved]
  - Pyrexia [Unknown]
  - Lymphadenitis [Recovered/Resolved]
  - Sjogren^s syndrome [Recovering/Resolving]

NARRATIVE: CASE EVENT DATE: 201507
